FAERS Safety Report 6978071-8 (Version None)
Quarter: 2010Q3

REPORT INFORMATION
  Report Type: 
  Country: None (occurrence: None)
  Receive Date: 20100913
  Receipt Date: 20100903
  Transmission Date: 20110219
  Serious: Yes (Hospitalization, Other)
  Sender: FDA-Public Use
  Company Number: TR-JNJFOC-20100405224

PATIENT
  Age: 57 Year
  Sex: Male

DRUGS (21)
  1. DURAGESIC-100 [Suspect]
     Indication: CANCER PAIN
     Route: 062
  2. DURAGESIC-100 [Suspect]
     Route: 062
  3. DURAGESIC-100 [Suspect]
     Route: 062
  4. DURAGESIC-100 [Suspect]
     Route: 062
  5. DURAGESIC-100 [Suspect]
     Route: 062
  6. LACTULOSE [Concomitant]
     Route: 065
  7. ASIST [Concomitant]
     Route: 065
  8. AMOXICILLIN [Concomitant]
     Route: 042
  9. AVIL [Concomitant]
     Dosage: 45.5 MG/2 ML VIAL
     Route: 065
  10. PAROL [Concomitant]
     Route: 065
  11. DEXAMETHASONE [Concomitant]
     Route: 065
  12. DIKLORON [Concomitant]
     Dosage: 75 MG/3 ML
     Route: 030
  13. DICLOFENAC [Concomitant]
     Route: 065
  14. SUPRAFEN [Concomitant]
     Route: 065
  15. VOLTAREN [Concomitant]
  16. LANSOPRAZOL [Concomitant]
  17. QUETIAPINE [Concomitant]
  18. ISOTONIC SOLUTIONS [Concomitant]
     Route: 065
  19. POTASSIUM BICARBONATE W/POTASSIUM CITRATE [Concomitant]
     Route: 065
  20. AMOXICILLIN AND CLAVULANATE POTASSIUM [Concomitant]
     Route: 065
  21. LYRICA [Concomitant]

REACTIONS (1)
  - DELIRIUM [None]
